FAERS Safety Report 5124951-8 (Version None)
Quarter: 2006Q4

REPORT INFORMATION
  Report Type: 
  Country: None (occurrence: None)
  Receive Date: 20061011
  Receipt Date: 20061005
  Transmission Date: 20070319
  Serious: Yes (Hospitalization)
  Sender: FDA-Public Use
  Company Number: AU-BRISTOL-MYERS SQUIBB COMPANY-13532916

PATIENT
  Age: 85 Year
  Sex: Female

DRUGS (11)
  1. KARVEA TABS [Suspect]
     Route: 048
  2. NORVASC [Suspect]
     Route: 048
  3. CELEBREX [Concomitant]
  4. CALTRATE [Concomitant]
  5. IMDUR [Concomitant]
  6. LEVOTHYROXINE SODIUM [Concomitant]
  7. ATENOLOL [Concomitant]
  8. PROGOUT [Concomitant]
  9. SOLPRIN [Concomitant]
  10. ZOCOR [Concomitant]
  11. DEPTRAN [Concomitant]

REACTIONS (2)
  - HYPONATRAEMIA [None]
  - SYNCOPE [None]
